FAERS Safety Report 19178192 (Version 1)
Quarter: 2021Q2

REPORT INFORMATION
  Report Type: Spontaneous
  Country: US (occurrence: US)
  Receive Date: 20210422
  Receipt Date: 20210422
  Transmission Date: 20210717
  Serious: No
  Sender: FDA-Public Use
  Company Number: None

PATIENT
  Age: 21 Year
  Sex: Female
  Weight: 65.25 kg

DRUGS (2)
  1. SPIRONOLACTONE. [Suspect]
     Active Substance: SPIRONOLACTONE
     Indication: ACNE
     Dates: start: 20201009, end: 20210131
  2. ESCITALOPRAM KARIVA [Concomitant]

REACTIONS (2)
  - Polymenorrhoea [None]
  - Therapy cessation [None]

NARRATIVE: CASE EVENT DATE: 20210128
